FAERS Safety Report 23224180 (Version 19)
Quarter: 2024Q3

REPORT INFORMATION
  Report Type: Report from Study
  Country: DE (occurrence: DE)
  Receive Date: 20231124
  Receipt Date: 20240913
  Transmission Date: 20241016
  Serious: Yes (Hospitalization)
  Sender: ROCHE
  Company Number: DE-ROCHE-3319899

PATIENT
  Age: 46 Year
  Sex: Male

DRUGS (5)
  1. OCREVUS [Suspect]
     Active Substance: OCRELIZUMAB
     Indication: Relapsing-remitting multiple sclerosis
     Route: 042
     Dates: start: 20230323
  2. BACLOFEN [Concomitant]
     Active Substance: BACLOFEN
     Dosage: 0.5-0.5-1
  3. TIZANIDINE [Concomitant]
     Active Substance: TIZANIDINE
  4. DALFAMPRIDINE [Concomitant]
     Active Substance: DALFAMPRIDINE
  5. METAMIZOLE [Concomitant]
     Active Substance: METAMIZOLE

REACTIONS (37)
  - Fatigue [Not Recovered/Not Resolved]
  - Fall [Unknown]
  - Gait disturbance [Not Recovered/Not Resolved]
  - Off label use [Unknown]
  - Back pain [Recovered/Resolved]
  - Drug ineffective [Unknown]
  - Cardiovascular disorder [Recovered/Resolved]
  - Myalgia [Recovering/Resolving]
  - Peroneal nerve palsy [Recovered/Resolved]
  - Muscle tightness [Recovering/Resolving]
  - Speech disorder [Recovered/Resolved]
  - Mouth injury [Recovered/Resolved]
  - Pain [Recovered/Resolved]
  - Skin abrasion [Recovered/Resolved]
  - Scratch [Recovered/Resolved]
  - Asthenia [Recovering/Resolving]
  - Electric shock sensation [Not Recovered/Not Resolved]
  - Musculoskeletal pain [Not Recovered/Not Resolved]
  - Feeling abnormal [Recovered/Resolved]
  - Headache [Not Recovered/Not Resolved]
  - Dysstasia [Recovering/Resolving]
  - Oropharyngeal pain [Recovered/Resolved]
  - Nasopharyngitis [Recovered/Resolved]
  - COVID-19 [Not Recovered/Not Resolved]
  - Incontinence [Recovered/Resolved]
  - Cough [Recovered/Resolved]
  - Dysphonia [Recovered/Resolved]
  - Haematoma [Recovered/Resolved]
  - Arthralgia [Recovered/Resolved]
  - Sciatica [Not Recovered/Not Resolved]
  - Erectile dysfunction [Not Recovered/Not Resolved]
  - Muscle tightness [Recovering/Resolving]
  - Muscle tightness [Not Recovered/Not Resolved]
  - Hypertension [Not Recovered/Not Resolved]
  - Depression [Recovered/Resolved]
  - Motor dysfunction [Recovered/Resolved]
  - Paraesthesia [Not Recovered/Not Resolved]

NARRATIVE: CASE EVENT DATE: 20230323
